FAERS Safety Report 6519841-X (Version None)
Quarter: 2009Q4

REPORT INFORMATION
  Report Type: 
  Country: None (occurrence: None)
  Receive Date: 20091228
  Receipt Date: 20091228
  Transmission Date: 20100525
  Serious: No
  Sender: FDA-Public Use
  Company Number: None

PATIENT
  Age: 56 Year
  Sex: Male
  Weight: 127.0072 kg

DRUGS (1)
  1. ZICAM NASAL SPRAY STANDARD MATRIXX INITIATIVES, INC. [Suspect]
     Indication: NASOPHARYNGITIS
     Dosage: LABEL INSTRUCTIONS
     Dates: start: 20010101, end: 20081231

REACTIONS (2)
  - AGEUSIA [None]
  - ANOSMIA [None]
